FAERS Safety Report 7970582-1 (Version None)
Quarter: 2011Q4

REPORT INFORMATION
  Report Type: 
  Country: None (occurrence: None)
  Receive Date: 20111212
  Receipt Date: 20111202
  Transmission Date: 20120403
  Serious: Yes (Other)
  Sender: FDA-Public Use
  Company Number: MX-SANOFI-AVENTIS-2011SA079582

PATIENT
  Age: 70 Year
  Sex: Female

DRUGS (1)
  1. ZOLPIDEM [Suspect]
     Indication: INSOMNIA
     Route: 048
     Dates: start: 20070101

REACTIONS (3)
  - HEADACHE [None]
  - FOOT DEFORMITY [None]
  - MOUTH ULCERATION [None]
